FAERS Safety Report 26027002 (Version 1)
Quarter: 2025Q4

REPORT INFORMATION
  Report Type: Spontaneous
  Country: EU (occurrence: EU)
  Receive Date: 20251111
  Receipt Date: 20251111
  Transmission Date: 20260118
  Serious: Yes (Hospitalization, Other)
  Sender: PFIZER
  Company Number: None

PATIENT
  Age: 43 Year
  Sex: Female

DRUGS (5)
  1. PACLITAXEL [Suspect]
     Active Substance: PACLITAXEL
     Indication: Triple negative breast cancer
     Dosage: ASSOCIATED WITH KEYTRUDA
     Dates: start: 20220721
  2. CARBOPLATIN [Suspect]
     Active Substance: CARBOPLATIN
     Indication: Triple negative breast cancer
     Dosage: ASSOCIATED WITH KEYTRUDA
     Dates: start: 20220721
  3. EPIRUBICIN HYDROCHLORIDE [Suspect]
     Active Substance: EPIRUBICIN HYDROCHLORIDE
     Indication: Triple negative breast cancer
     Dosage: ASSOCIATED WITH KEYTRUDA
     Dates: start: 20221104
  4. KEYTRUDA [Suspect]
     Active Substance: PEMBROLIZUMAB
     Indication: Triple negative breast cancer
     Dosage: 200MG
     Route: 042
     Dates: start: 20220721
  5. CYCLOPHOSPHAMIDE [Suspect]
     Active Substance: CYCLOPHOSPHAMIDE
     Indication: Triple negative breast cancer
     Dosage: ASSOCIATED WITH KEYTRUDA
     Dates: start: 20221104

REACTIONS (8)
  - Hepatic cytolysis [Recovering/Resolving]
  - Febrile bone marrow aplasia [Recovering/Resolving]
  - Neuropathy peripheral [Recovering/Resolving]
  - Hypothyroidism [Recovering/Resolving]
  - Neutropenia [Recovering/Resolving]
  - Hot flush [Recovering/Resolving]
  - Asthenia [Recovering/Resolving]
  - Nausea [Recovering/Resolving]

NARRATIVE: CASE EVENT DATE: 20220701
